FAERS Safety Report 23998752 (Version 1)
Quarter: 2024Q2

REPORT INFORMATION
  Report Type: Spontaneous
  Country: US (occurrence: US)
  Receive Date: 20240621
  Receipt Date: 20240621
  Transmission Date: 20240715
  Serious: No
  Sender: FDA-Public Use
  Company Number: US-BMS-IMIDS-REMS_SI-11322726

PATIENT
  Sex: Male

DRUGS (1)
  1. LENALIDOMIDE [Suspect]
     Active Substance: LENALIDOMIDE
     Indication: Product used for unknown indication
     Dosage: 1ST DISPENSE ON 14DEC2022?10 MG; AVERAGE DAILY DOSE 7 MG?QUANTITY: 21?CR9228038
     Dates: end: 2024

REACTIONS (1)
  - Disease progression [Unknown]
